FAERS Safety Report 13515445 (Version 5)
Quarter: 2017Q3

REPORT INFORMATION
  Report Type: Spontaneous
  Country: FR (occurrence: FR)
  Receive Date: 20170504
  Receipt Date: 20170809
  Transmission Date: 20171127
  Serious: Yes (Death, Life-Threatening, Hospitalization, Other)
  Sender: FDA-Public Use
  Company Number: FR-PFIZER INC-2017195979

PATIENT
  Age: 70 Year
  Sex: Male

DRUGS (3)
  1. DOCETAXEL HOSPIRA [Suspect]
     Active Substance: DOCETAXEL
     Indication: SQUAMOUS CELL CARCINOMA
     Dosage: 150 MG, CYCLIC
     Route: 041
     Dates: start: 20170124, end: 20170214
  2. CISPLATINE TEVA [Suspect]
     Active Substance: CISPLATIN
     Indication: SQUAMOUS CELL CARCINOMA
     Dosage: 200 MG, CYCLIC
     Route: 041
     Dates: start: 20170124, end: 20170214
  3. FLUOROURACIL. [Suspect]
     Active Substance: FLUOROURACIL
     Indication: SQUAMOUS CELL CARCINOMA
     Dosage: 800 MG, CYCLIC
     Route: 041
     Dates: start: 20170124, end: 20170214

REACTIONS (9)
  - Septic shock [Fatal]
  - Acute respiratory distress syndrome [Fatal]
  - Nausea [Not Recovered/Not Resolved]
  - Lactic acidosis [Fatal]
  - Diarrhoea [Fatal]
  - Agranulocytosis [Fatal]
  - Pneumonia aspiration [Fatal]
  - Vomiting [Not Recovered/Not Resolved]
  - Clostridium difficile colitis [Fatal]

NARRATIVE: CASE EVENT DATE: 20170124
